FAERS Safety Report 5024624-6 (Version None)
Quarter: 2006Q2

REPORT INFORMATION
  Report Type: 
  Country: None (occurrence: None)
  Receive Date: 20060427
  Receipt Date: 20051107
  Transmission Date: 20061013
  Serious: Yes (Hospitalization)
  Sender: FDA-Public Use
  Company Number: US-JNJFOC-20051002689

PATIENT
  Age: 82 Year
  Sex: Male
  Weight: 68.0396 kg

DRUGS (1)
  1. RAZADYNE ER [Suspect]
     Indication: DEMENTIA ALZHEIMER'S TYPE
     Dosage: 8 MG, ORAL
     Route: 048
     Dates: start: 20050914

REACTIONS (3)
  - NAUSEA [None]
  - SYNCOPE [None]
  - VOMITING [None]
